FAERS Safety Report 11612697 (Version 1)
Quarter: 2015Q4

REPORT INFORMATION
  Report Type: Spontaneous
  Country: FR (occurrence: FR)
  Receive Date: 20151008
  Receipt Date: 20151008
  Transmission Date: 20160304
  Serious: Yes (Life-Threatening, Hospitalization)
  Sender: FDA-Public Use
  Company Number: FR-ELI_LILLY_AND_COMPANY-FR201510000534

PATIENT
  Age: 69 Year
  Sex: Female

DRUGS (2)
  1. ALIMTA [Suspect]
     Active Substance: PEMETREXED DISODIUM
     Indication: PRODUCT USED FOR UNKNOWN INDICATION
     Dosage: 775 MG, UNKNOWN
     Route: 042
     Dates: start: 20150722, end: 20150722
  2. CARBOPLATIN HOSPIRA [Suspect]
     Active Substance: CARBOPLATIN
     Indication: PRODUCT USED FOR UNKNOWN INDICATION
     Dosage: 416.21 MG, UNKNOWN
     Route: 042
     Dates: start: 20150722, end: 20150722

REACTIONS (3)
  - Ischaemic stroke [Recovered/Resolved with Sequelae]
  - Off label use [Unknown]
  - Embolism [Unknown]

NARRATIVE: CASE EVENT DATE: 20150722
